FAERS Safety Report 20711570 (Version 2)
Quarter: 2022Q2

REPORT INFORMATION
  Report Type: Report from Study
  Country: US (occurrence: US)
  Receive Date: 20220414
  Receipt Date: 20220526
  Transmission Date: 20220721
  Serious: No
  Sender: FDA-Public Use
  Company Number: US-JAZZ-2022-US-011399

PATIENT
  Sex: Male

DRUGS (9)
  1. XYWAV [Suspect]
     Active Substance: CALCIUM OXYBATE\MAGNESIUM OXYBATE\POTASSIUM OXYBATE\SODIUM OXYBATE
     Indication: Narcolepsy
     Dosage: UNK
     Dates: start: 202103
  2. CLOBEX [CLOBETASOL PROPIONATE] [Concomitant]
     Dosage: UNK
     Dates: start: 20191123
  3. TIBSOVO [Concomitant]
     Active Substance: IVOSIDENIB
     Dosage: UNK
     Dates: start: 20191126
  4. PATADAY [Concomitant]
     Active Substance: OLOPATADINE HYDROCHLORIDE
     Dosage: UNK
     Dates: start: 20191019
  5. CANNABIDIOL\HERBALS [Concomitant]
     Active Substance: CANNABIDIOL\HERBALS
     Dosage: UNK
     Dates: start: 20200914
  6. CICLOPIROX [Concomitant]
     Active Substance: CICLOPIROX
     Dosage: UNK
     Dates: start: 20201223
  7. CLOBETASOL [Concomitant]
     Active Substance: CLOBETASOL
     Dosage: UNK
     Dates: start: 20201223
  8. TRULICITY [Concomitant]
     Active Substance: DULAGLUTIDE
     Dosage: PEN
     Dates: start: 20201215
  9. MAXALT [Concomitant]
     Active Substance: RIZATRIPTAN BENZOATE
     Dosage: UNK
     Dates: start: 20200914

REACTIONS (1)
  - No adverse event [Unknown]
